FAERS Safety Report 4262936-4 (Version None)
Quarter: 2004Q1

REPORT INFORMATION
  Report Type: 
  Country: None (occurrence: None)
  Receive Date: 20040102
  Receipt Date: 20040102
  Transmission Date: 20041129
  Serious: No
  Sender: FDA-Public Use
  Company Number: None

PATIENT
  Age: 27 Year
  Sex: Male
  Weight: 65 kg

DRUGS (1)
  1. DIAZEPAM [Suspect]
     Dosage: 20 MG ONCE ORAL
     Route: 048
     Dates: start: 20030908, end: 20030908

REACTIONS (6)
  - HEADACHE [None]
  - HYPERHIDROSIS [None]
  - LOSS OF CONSCIOUSNESS [None]
  - MENTAL IMPAIRMENT [None]
  - NAUSEA [None]
  - OVERDOSE [None]
